FAERS Safety Report 16189900 (Version 1)
Quarter: 2019Q2

REPORT INFORMATION
  Report Type: Spontaneous
  Country: NL (occurrence: NL)
  Receive Date: 20190412
  Receipt Date: 20190412
  Transmission Date: 20190711
  Serious: Yes (Other)
  Sender: FDA-Public Use
  Company Number: NL-009507513-1904NLD004598

PATIENT
  Sex: Female

DRUGS (7)
  1. SEROQUEL [Suspect]
     Active Substance: QUETIAPINE FUMARATE
     Dosage: UNK,
     Route: 048
  2. REMERON [Suspect]
     Active Substance: MIRTAZAPINE
     Dosage: UNK,
  3. SEROXAT [Suspect]
     Active Substance: PAROXETINE HYDROCHLORIDE
     Dosage: UNK,
  4. NORTRILEN [Suspect]
     Active Substance: NORTRIPTYLINE
     Dosage: UNK,
  5. EFEXOR [Suspect]
     Active Substance: VENLAFAXINE HYDROCHLORIDE
     Dosage: UNK,
  6. LITHIUM. [Suspect]
     Active Substance: LITHIUM
     Dosage: UNK,
  7. LAMICTAL [Suspect]
     Active Substance: LAMOTRIGINE
     Dosage: UNK,

REACTIONS (10)
  - Headache [Unknown]
  - Aggression [Unknown]
  - Nausea [Unknown]
  - Weight increased [Unknown]
  - Homicidal ideation [Unknown]
  - Restless legs syndrome [Unknown]
  - Libido decreased [Unknown]
  - Irritability [Unknown]
  - Suicidal ideation [Unknown]
  - Insomnia [Unknown]
